FAERS Safety Report 11301240 (Version 1)
Quarter: 2015Q3

REPORT INFORMATION
  Report Type: Spontaneous
  Country: US (occurrence: US)
  Receive Date: 20150722
  Receipt Date: 20150722
  Transmission Date: 20151125
  Serious: Yes (Other)
  Sender: FDA-Public Use
  Company Number: US-ELI_LILLY_AND_COMPANY-US201408002326

PATIENT
  Age: 53 Year
  Sex: Male

DRUGS (2)
  1. EFFIENT [Suspect]
     Active Substance: PRASUGREL HYDROCHLORIDE
     Indication: STENT PLACEMENT
     Dosage: 10 MG, UNKNOWN
     Route: 065
     Dates: start: 2014, end: 20140729
  2. PLAVIX [Suspect]
     Active Substance: CLOPIDOGREL BISULFATE
     Indication: PRODUCT USED FOR UNKNOWN INDICATION
     Dosage: 150 MG, EACH MORNING
     Route: 065
     Dates: start: 20140729

REACTIONS (8)
  - Paranasal sinus discomfort [Unknown]
  - Feeling abnormal [Unknown]
  - Muscular weakness [Unknown]
  - Facial pain [Unknown]
  - Haematuria [Unknown]
  - Chest discomfort [Unknown]
  - Hypoaesthesia [Unknown]
  - Fear [Unknown]

NARRATIVE: CASE EVENT DATE: 201407
